FAERS Safety Report 18169925 (Version 1)
Quarter: 2020Q3

REPORT INFORMATION
  Report Type: Spontaneous
  Country: DE (occurrence: DE)
  Receive Date: 20200819
  Receipt Date: 20200819
  Transmission Date: 20201103
  Serious: Yes (Hospitalization)
  Sender: FDA-Public Use
  Company Number: DE-MYLANLABS-2020M1071099

PATIENT
  Age: 80 Year
  Sex: Male

DRUGS (14)
  1. FEBUXOSTAT. [Suspect]
     Active Substance: FEBUXOSTAT
     Indication: PRODUCT USED FOR UNKNOWN INDICATION
     Dosage: 80 MG, 1?0?0?0, TABLETTEN
     Route: 048
  2. SALBUTAMOL [Concomitant]
     Active Substance: ALBUTEROL
     Dosage: 0.1 MG, BEI BEDARF, DOSIERAEROSOL
     Route: 055
  3. DICLOFENAC [Concomitant]
     Active Substance: DICLOFENAC
     Dosage: LETZTE 122019
     Route: 048
  4. TORASEMID [Concomitant]
     Active Substance: TORSEMIDE
     Dosage: 50 MG, 1?0?0?0, TABLETTEN
     Route: 048
  5. LATANOPROST. [Concomitant]
     Active Substance: LATANOPROST
     Dosage: 1?0?0?0
  6. EPLERENONE. [Concomitant]
     Active Substance: EPLERENONE
     Dosage: 25 MG, 0?1?0?0, TABLETTEN
     Route: 048
  7. BISOPROLOL [Concomitant]
     Active Substance: BISOPROLOL
     Dosage: 5 MG, 0.5?0?0.5?0, TABLETTEN
     Route: 048
  8. AMIODARON                          /00133101/ [Concomitant]
     Active Substance: AMIODARONE
     Dosage: 100 MG, 1?0?0?0, TABLETTEN
     Route: 048
  9. RAMIPRIL. [Concomitant]
     Active Substance: RAMIPRIL
     Dosage: 2.5 MG, 0.5?0?0?0, TABLETTEN
     Route: 048
  10. MAGNESIUM [Concomitant]
     Active Substance: MAGNESIUM
     Dosage: 100 MG, 1?0?1?0, TABLETTEN
     Route: 048
  11. BRIMICA GENUAIR [Concomitant]
     Active Substance: ACLIDINIUM BROMIDE\FORMOTEROL FUMARATE
     Dosage: 340|12 ?G, 1?0?1?0, DOSIERAEROSOL
     Route: 055
  12. BALDRIAN                           /01561601/ [Concomitant]
     Active Substance: VALERIAN
     Dosage: 0?0?0?2, DRAGEES
     Route: 048
  13. NALOXONE HYDROCHLORIDE W/TILIDINE HYDROCHLORI [Concomitant]
     Active Substance: NALOXONE HYDROCHLORIDE\TILIDINE HYDROCHLORIDE
     Dosage: 4|50 MG, BEI BEDARF, TABLETTEN
     Route: 048
  14. PANTOPRAZOL                        /01263201/ [Concomitant]
     Active Substance: PANTOPRAZOLE
     Dosage: 40 MG, 1?0?0?0, TABLETTEN
     Route: 048

REACTIONS (4)
  - Gout [Unknown]
  - Weight increased [Unknown]
  - Dyspnoea [Unknown]
  - Cough [Unknown]
